FAERS Safety Report 8127353-5 (Version None)
Quarter: 2012Q1

REPORT INFORMATION
  Report Type: 
  Country: None (occurrence: None)
  Receive Date: 20120210
  Receipt Date: 20120203
  Transmission Date: 20120608
  Serious: Yes (Death)
  Sender: FDA-Public Use
  Company Number: US-JNJFOC-20120204471

PATIENT
  Age: 4 Decade
  Sex: Male

DRUGS (4)
  1. OMEPRAZOLE [Concomitant]
     Indication: GASTROINTESTINAL DISORDER
     Route: 065
     Dates: end: 20120201
  2. NUCYNTA [Suspect]
     Indication: PAIN
     Route: 048
     Dates: start: 20120130, end: 20120201
  3. HYDROCODONE [Concomitant]
     Indication: PAIN
     Route: 065
     Dates: end: 20120201
  4. TRAMADOL HCL [Concomitant]
     Indication: PAIN
     Route: 048
     Dates: end: 20120201

REACTIONS (1)
  - COMPLETED SUICIDE [None]
